FAERS Safety Report 5729787-2 (Version None)
Quarter: 2008Q2

REPORT INFORMATION
  Report Type: 
  Country: None (occurrence: None)
  Receive Date: 20080501
  Receipt Date: 20080423
  Transmission Date: 20081010
  Serious: Yes (Hospitalization, Other)
  Sender: FDA-Public Use
  Company Number: 2008-01877

PATIENT
  Age: 38 Year
  Sex: Female

DRUGS (2)
  1. TRELSTAR DEPOT [Suspect]
     Indication: INFERTILITY
     Dosage: 0.1 MG, DAILY, INTRAMUSCULAR
     Route: 030
     Dates: start: 20080227, end: 20080308
  2. PUREGON (FOLLITROPIN BETA) [Concomitant]

REACTIONS (4)
  - RETINAL DETACHMENT [None]
  - RETINAL HAEMORRHAGE [None]
  - RETINAL OEDEMA [None]
  - VISION BLURRED [None]
